FAERS Safety Report 6837871-5 (Version None)
Quarter: 2010Q3

REPORT INFORMATION
  Report Type: 
  Country: None (occurrence: None)
  Receive Date: 20100713
  Receipt Date: 20070518
  Transmission Date: 20110219
  Serious: No
  Sender: FDA-Public Use
  Company Number: US-PFIZER INC-2007042194

PATIENT
  Sex: Male
  Weight: 63.636 kg

DRUGS (12)
  1. CHANTIX [Suspect]
     Indication: SMOKING CESSATION THERAPY
     Dates: start: 20070502
  2. VYTORIN [Concomitant]
  3. FOSAMAX [Concomitant]
  4. METOPROLOL [Concomitant]
  5. HYPERICUM PERFORATUM [Concomitant]
  6. ACETYLSALICYLIC ACID [Concomitant]
  7. CALCIUM [Concomitant]
  8. FISH OIL [Concomitant]
  9. SAW PALMETTO [Concomitant]
  10. GARLIC [Concomitant]
  11. MULTI-VITAMINS [Concomitant]
  12. PLAVIX [Concomitant]

REACTIONS (2)
  - DRUG WITHDRAWAL SYNDROME [None]
  - SOMNOLENCE [None]
